FAERS Safety Report 8173296-0 (Version None)
Quarter: 2012Q1

REPORT INFORMATION
  Report Type: 
  Country: None (occurrence: None)
  Receive Date: 20120104
  Receipt Date: 20111031
  Transmission Date: 20120608
  Serious: No
  Sender: FDA-Public Use
  Company Number: 2011HGS-002573

PATIENT
  Age: 38 Year
  Sex: Female
  Weight: 60.2377 kg

DRUGS (15)
  1. NEURONTIN (GABAPENTIN) (GABPENTIN) [Concomitant]
  2. PRILOSEC (OMEPRAZOLE) (OMEPRAZOLE) [Concomitant]
  3. ZANAFLEX (TIZANIDINE HYDROCHLORIDE) (TIZANIDINE HYDROCHLORIDE) [Concomitant]
  4. IMURAN [Concomitant]
  5. PLAQUENIL (HYDROCXYCHLOROQUINE SULFATE) (HYDROXYCHLOROQUINE SULFATE) [Concomitant]
  6. POLYETGTLENE GLYCOL (MACROGOL) (MACROGOL) [Concomitant]
  7. KLONOPIN [Concomitant]
  8. PREDNISONE [Concomitant]
  9. SENOKOT (SENNA ALEXANDRINA FRUIT) (SENNA ALEXANDRINA FRUIT) [Concomitant]
  10. PHENERGAN (PROMETHAZINE HYDROCHLORIDE) (PROMETHAZINE HYDROCHLORIDE) [Concomitant]
  11. AMBIEN [Concomitant]
  12. ACTONEL (RISEDRONATE SODIUM) (RISEDRONATE SODIUM) [Concomitant]
  13. ZOLOFT [Concomitant]
  14. BENLYSTA [Suspect]
     Indication: SYSTEMIC LUPUS ERYTHEMATOSUS
     Dosage: 10 MG/KG INTRAVENOUS DRIP
     Route: 041
     Dates: start: 20110815
  15. NORCO (VICODIN) (PARACETAMOL, HYDROCODONE [Concomitant]

REACTIONS (10)
  - PANIC ATTACK [None]
  - CHEST DISCOMFORT [None]
  - HEART RATE INCREASED [None]
  - TREMOR [None]
  - DYSPNOEA [None]
  - DIZZINESS [None]
  - ANXIETY [None]
  - ABDOMINAL PAIN [None]
  - CHILLS [None]
  - INSOMNIA [None]
